FAERS Safety Report 9668740 (Version 2)
Quarter: 2013Q4

REPORT INFORMATION
  Report Type: Spontaneous
  Country: DE (occurrence: DE)
  Receive Date: 20131105
  Receipt Date: 20131105
  Transmission Date: 20140711
  Serious: Yes (Life-Threatening, Other)
  Sender: FDA-Public Use
  Company Number: DE-JNJFOC-20130914178

PATIENT
  Age: 68 Year
  Sex: Female

DRUGS (1)
  1. XARELTO [Suspect]
     Indication: PRODUCT USED FOR UNKNOWN INDICATION
     Route: 048

REACTIONS (10)
  - Subdural haematoma [Recovered/Resolved with Sequelae]
  - Contusion [Unknown]
  - Haemorrhage [Unknown]
  - Cerebral haemorrhage [Recovered/Resolved with Sequelae]
  - Subarachnoid haemorrhage [Unknown]
  - Pneumonia [Unknown]
  - Dysphagia [Unknown]
  - Atelectasis [Unknown]
  - Respiratory failure [Unknown]
  - Fall [Unknown]
